FAERS Safety Report 5349839-9 (Version None)
Quarter: 2007Q2

REPORT INFORMATION
  Report Type: 
  Country: None (occurrence: None)
  Receive Date: 20070607
  Receipt Date: 20070525
  Transmission Date: 20071010
  Serious: Yes (Other)
  Sender: FDA-Public Use
  Company Number: NL-ROXANE LABORATORIES, INC-2007-DE-03131GD

PATIENT

DRUGS (8)
  1. HYDROCORTISONE [Suspect]
     Indication: CENTRAL NERVOUS SYSTEM LYMPHOMA
     Route: 037
  2. METHOTREXATE SODIUM [Suspect]
     Indication: CENTRAL NERVOUS SYSTEM LYMPHOMA
     Route: 042
  3. METHOTREXATE SODIUM [Suspect]
     Route: 037
  4. LEUCOVORIN CALCIUM [Suspect]
     Indication: CENTRAL NERVOUS SYSTEM LYMPHOMA
  5. METHYLPREDNISOLONE 16MG TAB [Suspect]
     Indication: CENTRAL NERVOUS SYSTEM LYMPHOMA
     Route: 048
  6. TENIPOSIDE [Suspect]
     Indication: CENTRAL NERVOUS SYSTEM LYMPHOMA
     Route: 042
  7. CARMUSTINE [Suspect]
     Indication: CENTRAL NERVOUS SYSTEM LYMPHOMA
     Route: 042
  8. CYTARABINE [Suspect]
     Indication: CENTRAL NERVOUS SYSTEM LYMPHOMA
     Route: 037

REACTIONS (1)
  - UROGENITAL DISORDER [None]
